FAERS Safety Report 9433700 (Version 2)
Quarter: 2013Q4

REPORT INFORMATION
  Report Type: Spontaneous
  Country: US (occurrence: US)
  Receive Date: 20130731
  Receipt Date: 20131014
  Transmission Date: 20140711
  Serious: Yes (Hospitalization, Other)
  Sender: FDA-Public Use
  Company Number: US-UCBSA-092950

PATIENT
  Age: 45 Year
  Sex: Female
  Weight: 65.77 kg

DRUGS (12)
  1. CIMZIA [Suspect]
     Indication: CROHN^S DISEASE
     Dates: start: 2011, end: 201107
  2. CIMZIA [Suspect]
     Indication: CROHN^S DISEASE
     Dates: start: 20111202, end: 2012
  3. HUMIRA [Suspect]
     Indication: CROHN^S DISEASE
     Dosage: 40 MG
     Dates: start: 2011, end: 20111202
  4. HUMIRA [Suspect]
     Indication: CROHN^S DISEASE
     Dates: start: 201303
  5. REMICADE [Suspect]
     Indication: CROHN^S DISEASE
     Dosage: UNKNOWN DOSE
     Dates: start: 201209, end: 201303
  6. PRILOSEC [Concomitant]
     Indication: GASTROOESOPHAGEAL REFLUX DISEASE
     Dosage: UNKNOWN DOSE
  7. LOMOTIL [Concomitant]
     Indication: DIARRHOEA
     Dosage: UNKNOWN DOSE
  8. ZOFRAN [Concomitant]
     Indication: NAUSEA
     Dosage: UNKNOWN DOSE
  9. POTASSIUM [Concomitant]
     Dosage: UNKNOWN DOSE
  10. VITAMIN B12 [Concomitant]
     Dosage: UNKNOWN DOSE
  11. LEVOTHYROXINE [Concomitant]
     Indication: THYROID DISORDER
     Dosage: UNKNOWN DOSE
  12. COUMADIN [Concomitant]
     Indication: PULMONARY EMBOLISM
     Dosage: UNKNOWN DOSE

REACTIONS (17)
  - Thrombosis [Recovered/Resolved]
  - Local swelling [Recovered/Resolved]
  - Large intestinal ulcer [Unknown]
  - Large intestinal stenosis [Unknown]
  - Intestinal ulcer [Not Recovered/Not Resolved]
  - Abdominal adhesions [Unknown]
  - Crohn^s disease [Unknown]
  - Microcytic anaemia [Unknown]
  - Pain [Unknown]
  - Diarrhoea [Unknown]
  - Gingival pain [Recovered/Resolved]
  - Stomatitis [Recovered/Resolved]
  - Swelling [Recovered/Resolved]
  - Fatigue [Recovered/Resolved]
  - Insomnia [Recovered/Resolved]
  - Dark circles under eyes [Recovered/Resolved]
  - Drug ineffective [Recovered/Resolved]
